FAERS Safety Report 8951664 (Version 1)
Quarter: 2012Q4

REPORT INFORMATION
  Report Type: 
  Country: US (occurrence: US)
  Receive Date: 20121204
  Receipt Date: 20121204
  Transmission Date: 20130627
  Serious: Yes (Other)
  Sender: FDA-Public Use
  Company Number: CHPA2012US024101

PATIENT
  Age: 75 Year
  Sex: Female

DRUGS (1)
  1. EXCEDRIN PM [Suspect]
     Indication: INSOMNIA
     Dosage: 1 DF, EVERY NIGHT
     Route: 048

REACTIONS (3)
  - Drug dependence [Unknown]
  - Incorrect drug administration duration [Unknown]
  - Underdose [Unknown]
